FAERS Safety Report 14113502 (Version 1)
Quarter: 2017Q4

REPORT INFORMATION
  Report Type: Spontaneous
  Country: DE (occurrence: DE)
  Receive Date: 20171023
  Receipt Date: 20171023
  Transmission Date: 20180321
  Serious: Yes (Death)
  Sender: FDA-Public Use
  Company Number: DE-ROCHE-2011569

PATIENT
  Sex: Female

DRUGS (1)
  1. MABTHERA [Suspect]
     Active Substance: RITUXIMAB
     Indication: CHRONIC LYMPHOCYTIC LEUKAEMIA
     Route: 042
     Dates: start: 201610, end: 201703

REACTIONS (2)
  - Progressive multifocal leukoencephalopathy [Fatal]
  - Disease progression [Fatal]

NARRATIVE: CASE EVENT DATE: 20170715
